FAERS Safety Report 8031218-7 (Version None)
Quarter: 2012Q1

REPORT INFORMATION
  Report Type: 
  Country: None (occurrence: None)
  Receive Date: 20120109
  Receipt Date: 20120103
  Transmission Date: 20120608
  Serious: Yes (Death, Hospitalization, Other)
  Sender: FDA-Public Use
  Company Number: GB-ABBOTT-11P-167-0836257-00

PATIENT
  Sex: Male

DRUGS (43)
  1. PREDNISOLONE [Concomitant]
     Dosage: AT PRESENT FOR 2 DAYS, TO REDUCE BY 10 MG EVERY WEEK AND STAY AT 20 MG OD THEN REVIEW
  2. ALENDRONATE SODIUM [Concomitant]
     Indication: PRODUCT USED FOR UNKNOWN INDICATION
  3. ACETAMINOPHEN [Concomitant]
     Indication: PRODUCT USED FOR UNKNOWN INDICATION
  4. TRAMADOL HCL [Concomitant]
     Indication: PRODUCT USED FOR UNKNOWN INDICATION
     Dosage: DISPERSABLE
  5. STRONTIUM RANELATE [Concomitant]
     Indication: PRODUCT USED FOR UNKNOWN INDICATION
     Dosage: SACHET DISOLVES IN WATER
  6. LEVOTHYROXINE SODIUM [Concomitant]
     Indication: PRODUCT USED FOR UNKNOWN INDICATION
  7. CALCIUM CARBONATE [Concomitant]
     Indication: PRODUCT USED FOR UNKNOWN INDICATION
  8. FORTIJUICE [Concomitant]
     Indication: PRODUCT USED FOR UNKNOWN INDICATION
  9. MOVIPREP [Concomitant]
     Indication: PRODUCT USED FOR UNKNOWN INDICATION
     Dosage: MOVICOL-HALF SACHETS
  10. TRIMIPRAMINE MALEATE [Concomitant]
     Indication: PRODUCT USED FOR UNKNOWN INDICATION
     Dosage: TABLETS DISPERSE IN WATER
  11. SENNA [Concomitant]
     Dosage: 7.5MG
  12. ACETAMINOPHEN [Concomitant]
     Dosage: 500 MG SOLUBLE
  13. NYSTATIN [Concomitant]
     Indication: PRODUCT USED FOR UNKNOWN INDICATION
     Dosage: 100,000 UNITS/ML SUSPENSION (30ML)
  14. ORAMORPH SR [Concomitant]
     Dosage: 10 MG/5ML
  15. ZOPICLONE [Concomitant]
     Indication: PRODUCT USED FOR UNKNOWN INDICATION
     Dosage: CRUSH
  16. LEVOMEPROMAZINE [Concomitant]
     Indication: PRODUCT USED FOR UNKNOWN INDICATION
  17. LANSOPRAZOLE [Concomitant]
     Indication: PRODUCT USED FOR UNKNOWN INDICATION
  18. FORTIJUICE [Concomitant]
  19. LACTULOSE [Concomitant]
  20. TRAMADOL HCL [Concomitant]
     Dosage: 100 MG DISPERSABLE
  21. METHYLPREDNISOLONE [Concomitant]
     Indication: PRODUCT USED FOR UNKNOWN INDICATION
     Dosage: 3 DOSES
     Route: 042
  22. PREDNISOLONE [Concomitant]
     Indication: PRODUCT USED FOR UNKNOWN INDICATION
  23. ORAMORPH SR [Concomitant]
     Indication: PRODUCT USED FOR UNKNOWN INDICATION
     Dosage: 10MG/5ML
  24. ANALGESIA [Concomitant]
     Indication: PRODUCT USED FOR UNKNOWN INDICATION
  25. GLYCEROL 2.6% [Concomitant]
     Indication: PRODUCT USED FOR UNKNOWN INDICATION
     Dosage: 1 OR 2 EVERY 3 DAYS
  26. FLUDRACORTISONE [Concomitant]
     Indication: PRODUCT USED FOR UNKNOWN INDICATION
  27. SENNA [Concomitant]
     Indication: PRODUCT USED FOR UNKNOWN INDICATION
  28. FLUDROCORTISONE [Concomitant]
     Indication: PRODUCT USED FOR UNKNOWN INDICATION
     Dosage: DISPERSE IN 10MLS OF WATER
  29. MIRTAZAPINE [Concomitant]
     Indication: PRODUCT USED FOR UNKNOWN INDICATION
  30. CITALOPRAM [Concomitant]
  31. AMOXICILLIN AND CLAVULANATE POTASSIUM [Concomitant]
     Indication: PRODUCT USED FOR UNKNOWN INDICATION
     Dosage: SUSPENSION
  32. NYSTATIN [Concomitant]
     Dosage: 100000 UNITS/ML SUSPENSION
  33. DOCUSATE SODIUM [Concomitant]
     Indication: PRODUCT USED FOR UNKNOWN INDICATION
     Dosage: LIQUID FORM DILUTE WITH EQUAL VOLUME OF WATER
  34. MERCAPTOPURINE [Concomitant]
     Indication: PRODUCT USED FOR UNKNOWN INDICATION
  35. CITALOPRAM [Concomitant]
     Indication: PRODUCT USED FOR UNKNOWN INDICATION
  36. LACTULOSE [Concomitant]
     Indication: PRODUCT USED FOR UNKNOWN INDICATION
     Dosage: MIX WITH 2-3 X VOLUME WITH WATER
  37. FENTANYL [Concomitant]
     Indication: PRODUCT USED FOR UNKNOWN INDICATION
     Dosage: ONE HUNDREDMICROGRAM PER HOUR, PATCH CHANGE EVERY 72 HRS
     Route: 062
  38. LIDOCAINE [Concomitant]
     Indication: PRODUCT USED FOR UNKNOWN INDICATION
     Dosage: ATCHES BOTH TO LEFT ARM REMOVE 12 HR LATER, SHORT TERM
  39. HUMIRA [Suspect]
     Indication: WEGENER'S GRANULOMATOSIS
     Dates: start: 20070101, end: 20110701
  40. SIMVASTATIN [Concomitant]
     Indication: PRODUCT USED FOR UNKNOWN INDICATION
     Dosage: CRUSH DISPERSE IN 10MLS OF WATER
  41. HALOPERIDOL [Concomitant]
     Indication: PRODUCT USED FOR UNKNOWN INDICATION
  42. ENOXAPARIN [Concomitant]
     Indication: PRODUCT USED FOR UNKNOWN INDICATION
     Dosage: 100MG (10,000 UNITS)/1ML SYRINGE
  43. ENOXAPARIN PROPHYLACTIC [Concomitant]
     Indication: PRODUCT USED FOR UNKNOWN INDICATION
     Dosage: 100MG (10000 UNITS) 1 ML SYNRINGE
     Route: 058

REACTIONS (5)
  - HERPES ZOSTER [None]
  - PROGRESSIVE MULTIFOCAL LEUKOENCEPHALOPATHY [None]
  - FEMORAL NECK FRACTURE [None]
  - FALL [None]
  - OFF LABEL USE [None]
